FAERS Safety Report 7515251-7 (Version None)
Quarter: 2011Q2

REPORT INFORMATION
  Report Type: 
  Country: None (occurrence: None)
  Receive Date: 20110601
  Receipt Date: 20100525
  Transmission Date: 20111010
  Serious: Yes (Other)
  Sender: FDA-Public Use
  Company Number: US-PFIZER INC-2010047974

PATIENT
  Sex: Female
  Weight: 67 kg

DRUGS (3)
  1. CHANTIX [Suspect]
     Indication: SMOKING CESSATION THERAPY
     Dosage: 0.5 MG, 1X/DAY
     Route: 048
     Dates: start: 20080101, end: 20080101
  2. PREDNISONE [Concomitant]
     Indication: ARTHRITIS
     Dosage: UNK
  3. CHANTIX [Suspect]
     Dosage: 0.5 MG, 1X/DAY
     Dates: start: 20100406, end: 20100413

REACTIONS (4)
  - DEPRESSION [None]
  - ANGER [None]
  - ANXIETY [None]
  - AGGRESSION [None]
